FAERS Safety Report 5606754-0 (Version None)
Quarter: 2008Q1

REPORT INFORMATION
  Report Type: 
  Country: None (occurrence: None)
  Receive Date: 20080129
  Receipt Date: 20080121
  Transmission Date: 20080703
  Serious: Yes (Hospitalization)
  Sender: FDA-Public Use
  Company Number: JP-PFIZER INC-2007101287

PATIENT
  Sex: Male
  Weight: 61 kg

DRUGS (11)
  1. EPIRUBICIN HYDROCHLORIDE [Suspect]
     Indication: BLADDER CANCER
     Dates: start: 20070911, end: 20071106
  2. FOSAMAX [Concomitant]
     Route: 048
  3. TAKEPRON [Concomitant]
     Route: 048
  4. IMURAN [Concomitant]
     Route: 048
  5. MUCODYNE [Concomitant]
     Route: 048
  6. MEDICON [Concomitant]
     Route: 048
  7. HOKUNALIN [Concomitant]
     Route: 062
  8. HYPEN [Concomitant]
     Route: 048
  9. NITRODERM [Concomitant]
     Route: 062
  10. TAMSULOSIN HCL [Concomitant]
     Route: 048
  11. VALSARTAN [Concomitant]
     Route: 048

REACTIONS (1)
  - INTERSTITIAL LUNG DISEASE [None]
